FAERS Safety Report 9360688 (Version 7)
Quarter: 2014Q1

REPORT INFORMATION
  Report Type: Report from Study
  Country: KR (occurrence: KR)
  Receive Date: 20130621
  Receipt Date: 20140321
  Transmission Date: 20141002
  Serious: Yes (Death, Hospitalization)
  Sender: FDA-Public Use
  Company Number: KR-BAYER-2013-049627

PATIENT
  Age: 49 Year
  Sex: Male
  Weight: 66.95 kg

DRUGS (7)
  1. REGORAFENIB [Suspect]
     Indication: GASTROINTESTINAL STROMAL TUMOUR
     Dosage: DAILY DOSE 160 MG (CYCLE 1-2)
     Dates: start: 20130325, end: 20130519
  2. REGORAFENIB [Suspect]
     Indication: GASTROINTESTINAL STROMAL TUMOUR
     Dosage: DAILY DOSE 120 MG
     Dates: start: 20130520, end: 20130610
  3. REGORAFENIB [Suspect]
     Indication: GASTROINTESTINAL STROMAL TUMOUR
     Dosage: DAILY DOSE 120 MG
     Dates: start: 20130619
  4. REGORAFENIB [Suspect]
     Indication: GASTROINTESTINAL STROMAL TUMOUR
     Dosage: 120 MG/DAY
     Dates: start: 20130911, end: 20130926
  5. REGORAFENIB [Suspect]
     Indication: GASTROINTESTINAL STROMAL TUMOUR
     Dosage: 120 MG, QD
     Route: 048
     Dates: start: 20131009, end: 20131029
  6. MORPHINE [Concomitant]
     Indication: PAIN
     Dosage: 20 MG/DAY
     Route: 042
     Dates: start: 20130926, end: 20130930
  7. FENTANYL [Concomitant]
     Indication: PAIN
     Dosage: 12 MCG/H/DAY
     Route: 062
     Dates: start: 20130927, end: 20130929

REACTIONS (5)
  - Fatigue [Fatal]
  - Fatigue [Recovered/Resolved]
  - Azotaemia [Recovered/Resolved]
  - Azotaemia [Recovered/Resolved]
  - Mental status changes [Recovered/Resolved]
